FAERS Safety Report 10412560 (Version 1)
Quarter: 2014Q2

REPORT INFORMATION
  Report Type: Spontaneous
  Country: US (occurrence: None)
  Receive Date: 20140604
  Receipt Date: 20140604
  Transmission Date: 20141212
  Serious: Yes (Hospitalization)
  Sender: FDA-Public Use
  Company Number: 163-POMAL-14033532

PATIENT
  Age: 69 Year
  Sex: Male
  Weight: 82.6 kg

DRUGS (17)
  1. POMALYST (POMALIDOMIDE) (2 MILLIGRAM, CAPSULES) [Suspect]
     Indication: AMYLOIDOSIS
     Dosage: 2 MG, 28 IN 28 D
     Route: 048
     Dates: start: 20140218
  2. LOVENOX (HEPARIN-FRACTION, SODIUM SALT) [Concomitant]
  3. KLOR-CON (POTASSIUM CHLORIDE) UNKNOWN [Concomitant]
  4. LOMOTIL [Concomitant]
  5. LOSARTAN [Concomitant]
  6. DEXAMETHASONE [Concomitant]
  7. FUROSEMIDE [Concomitant]
  8. NEVANAC (NEPAFENAC) [Concomitant]
  9. LOVASTATIN [Concomitant]
  10. PREDNISOLONE [Concomitant]
  11. ACYCLOVIR (ACICLOVIR) (ACICLOVIR) [Concomitant]
  12. DILTIAZEM ER (DILTIAZEM HYDROCHLORIDE) [Concomitant]
  13. ENOXAPARIN [Concomitant]
  14. IMDUR (ISOSORIDE MONONITRATE) [Concomitant]
  15. LISINOPRIL [Concomitant]
  16. PRILOSEC (OMEPRAZOLE) [Concomitant]
  17. ZOLPIDEM ER (ZOLPIDEM) [Concomitant]

REACTIONS (3)
  - Cough [None]
  - Dyspnoea [None]
  - Tongue discolouration [None]
